FAERS Safety Report 8304122-4 (Version None)
Quarter: 2012Q2

REPORT INFORMATION
  Report Type: 
  Country: None (occurrence: None)
  Receive Date: 20120418
  Receipt Date: 20100618
  Transmission Date: 20120825
  Serious: No
  Sender: FDA-Public Use
  Company Number: AEUSA201000225

PATIENT
  Age: 70 Year
  Sex: Female
  Weight: 102.0593 kg

DRUGS (12)
  1. OXAZEPAM [Concomitant]
  2. PROLASTIN-C [Suspect]
     Indication: ALPHA-1 ANTI-TRYPSIN DEFICIENCY
     Dosage: 6240 MG, QW, IV
     Route: 042
     Dates: start: 20100401
  3. ALLOPURINOL [Suspect]
     Indication: PRODUCT USED FOR UNKNOWN INDICATION
     Dosage: UNKNOWN
     Dates: start: 20100101
  4. PRILOSEC [Concomitant]
  5. SPIRIVA [Concomitant]
  6. ALBUTEROL [Concomitant]
  7. ALLOPURINOL [Concomitant]
  8. LEVOTHYROXINE SODIUM [Concomitant]
  9. METOPOROLOL [Concomitant]
  10. LASIX [Concomitant]
  11. LASIX [Suspect]
     Indication: CARDIAC FAILURE CONGESTIVE
     Dosage: UNKNOWN
     Dates: start: 20100101
  12. SYMBICORT [Concomitant]

REACTIONS (2)
  - DYSGEUSIA [None]
  - URINE ODOUR ABNORMAL [None]
